FAERS Safety Report 9425286 (Version 1)
Quarter: 2013Q3

REPORT INFORMATION
  Report Type: Spontaneous
  Country: GB (occurrence: GB)
  Receive Date: 20130729
  Receipt Date: 20130729
  Transmission Date: 20140515
  Serious: Yes (Other)
  Sender: FDA-Public Use
  Company Number: GB-TEVA-420233ISR

PATIENT
  Age: 44 Year
  Sex: Female
  Weight: 88 kg

DRUGS (3)
  1. WARFARIN [Suspect]
     Route: 048
     Dates: start: 201206
  2. PROSTAP [Interacting]
     Indication: VAGINAL HAEMORRHAGE
     Dosage: VAGINAL BLEEDING PRIOR TO SURGERY FOR FIBROIDS
     Route: 030
     Dates: start: 20130503
  3. HYDROXOCOBALAMIN [Concomitant]
     Route: 030
     Dates: start: 201306

REACTIONS (2)
  - International normalised ratio increased [Not Recovered/Not Resolved]
  - Drug interaction [Not Recovered/Not Resolved]
